FAERS Safety Report 7704803-7 (Version None)
Quarter: 2011Q3

REPORT INFORMATION
  Report Type: 
  Country: None (occurrence: None)
  Receive Date: 20110823
  Receipt Date: 20110809
  Transmission Date: 20111222
  Serious: Yes (Other)
  Sender: FDA-Public Use
  Company Number: CA-CELGENEUS-028-C5013-11022033

PATIENT
  Sex: Male
  Weight: 86.2 kg

DRUGS (32)
  1. ASPIRIN [Concomitant]
     Dosage: 81 MILLIGRAM
     Route: 048
     Dates: start: 20090226, end: 20101101
  2. THALOMID [Suspect]
     Indication: MULTIPLE MYELOMA
     Dosage: 200 MILLIGRAM
     Route: 048
     Dates: start: 20090226, end: 20100629
  3. FERROUS SULFATE TAB [Concomitant]
     Indication: PROPHYLAXIS
     Dosage: 330 MILLIGRAM
     Route: 048
     Dates: start: 20080701
  4. DOCUSATE SODIUM [Concomitant]
     Indication: CONSTIPATION PROPHYLAXIS
     Dosage: 100-200MG
     Route: 048
     Dates: start: 20090301
  5. CIPROFLOXACIN [Concomitant]
     Indication: PNEUMONIA
     Dosage: 500 MILLIGRAM
     Route: 048
     Dates: start: 20090609, end: 20090615
  6. ADVAIR PUFFER [Concomitant]
     Indication: PNEUMONIA
     Dosage: 250 MILLIGRAM
     Dates: start: 20090617, end: 20090621
  7. PREVACID [Concomitant]
     Dosage: 30 MILLIGRAM
     Route: 048
     Dates: start: 20090721, end: 20090731
  8. RED BLOOD CELLS [Concomitant]
     Route: 041
  9. PREDNISONE TAB [Suspect]
     Indication: MULTIPLE MYELOMA
     Dosage: 180 MILLIGRAM
     Route: 065
     Dates: start: 20090226, end: 20100311
  10. SYNTHROID [Concomitant]
     Indication: HYPOTHYROIDISM
     Dosage: .175 MILLIGRAM
     Route: 048
     Dates: start: 19990101
  11. FILGRASTIM [Concomitant]
     Dosage: 480 MICROGRAM
     Route: 058
     Dates: start: 20090709, end: 20090803
  12. CEFTAZIDIME [Concomitant]
     Indication: PNEUMONIA
     Dosage: 2 GRAM
     Route: 041
     Dates: start: 20090617, end: 20090621
  13. REMERON [Concomitant]
     Indication: INSOMNIA
     Dosage: 7 MILLIGRAM
     Route: 048
     Dates: start: 19870101
  14. FILGRASTIM [Concomitant]
     Dosage: 480 MICROGRAM
     Route: 058
     Dates: start: 20090810, end: 20090824
  15. EPREX [Concomitant]
     Dosage: 40000 IU (INTERNATIONAL UNIT)
     Route: 058
     Dates: start: 20090731, end: 20091016
  16. EPREX [Concomitant]
     Dosage: 40000 IU (INTERNATIONAL UNIT)
     Route: 058
     Dates: start: 20091130
  17. PLATELETS [Concomitant]
     Route: 041
  18. FILGRASTIM [Concomitant]
     Dosage: 480 MICROGRAM
     Route: 058
     Dates: start: 20090825, end: 20101101
  19. CEFUROXIME [Concomitant]
     Indication: FEBRILE NEUTROPENIA
     Dosage: 500 MILLIGRAM
     Route: 048
     Dates: start: 20090312, end: 20090317
  20. SENNA [Concomitant]
     Indication: CONSTIPATION
     Dosage: 8.6-17.2 MG
     Route: 048
     Dates: start: 20090314, end: 20090701
  21. CIPROFLOXACIN [Concomitant]
     Indication: INFECTION PROPHYLAXIS
     Dosage: 500 MILLIGRAM
     Route: 048
     Dates: start: 20090622, end: 20090629
  22. AMOXICILLIN AND CLAVULANATE POTASSIUM [Concomitant]
     Indication: PNEUMONIA
     Dosage: 875 MILLIGRAM
     Route: 048
     Dates: start: 20090622, end: 20090629
  23. FLAGYL [Concomitant]
     Indication: TOOTH INFECTION
     Dosage: 500 MILLIGRAM
     Route: 048
     Dates: start: 20090721, end: 20090731
  24. ATIVAN [Concomitant]
     Indication: INSOMNIA
     Dosage: 1 MILLIGRAM
     Route: 048
     Dates: start: 20070101
  25. ATIVAN [Concomitant]
     Indication: ANXIETY
  26. ASCORBIC ACID [Concomitant]
     Dosage: 1000 MILLIGRAM
     Route: 048
     Dates: start: 19800101
  27. VITAMIN D [Concomitant]
     Dosage: 5000 MILLIGRAM
     Route: 048
     Dates: start: 20080101
  28. VIAGRA [Concomitant]
     Dosage: 50 MILLIGRAM
     Route: 048
     Dates: start: 20040101
  29. PENICILLIN [Concomitant]
     Indication: TOOTH INFECTION
     Dosage: 600 MILLIGRAM
     Route: 048
     Dates: start: 20090721, end: 20090731
  30. MELPHALAN HYDROCHLORIDE [Suspect]
     Indication: MULTIPLE MYELOMA
     Dosage: 22 MILLIGRAM
     Route: 065
     Dates: start: 20090226, end: 20100311
  31. MULTI-VITAMINS [Concomitant]
     Indication: VITAMIN SUPPLEMENTATION
     Dosage: 1 TABLET
     Route: 048
     Dates: start: 19800101
  32. FILGRASTIM [Concomitant]
     Indication: NEUTROPENIA
     Dosage: 480 MICROGRAM
     Route: 058
     Dates: start: 20090611, end: 20090615

REACTIONS (2)
  - MYELODYSPLASTIC SYNDROME [None]
  - INTERSTITIAL LUNG DISEASE [None]
